FAERS Safety Report 19525531 (Version 1)
Quarter: 2021Q3

REPORT INFORMATION
  Report Type: Spontaneous
  Country: US (occurrence: US)
  Receive Date: 20210713
  Receipt Date: 20210713
  Transmission Date: 20211014
  Serious: No
  Sender: FDA-Public Use
  Company Number: None

PATIENT
  Age: 42 Year
  Sex: Female
  Weight: 63.2 kg

DRUGS (2)
  1. LOMUSTINE (CCNU) 190 MG [Suspect]
     Active Substance: LOMUSTINE
     Dates: end: 20210511
  2. PROCARBAZINE 1400 MG [Suspect]
     Active Substance: PROCARBAZINE
     Dates: end: 20210601

REACTIONS (1)
  - Platelet disorder [None]

NARRATIVE: CASE EVENT DATE: 20210614
